FAERS Safety Report 8286673-4 (Version None)
Quarter: 2012Q2

REPORT INFORMATION
  Report Type: 
  Country: None (occurrence: None)
  Receive Date: 20120416
  Receipt Date: 20120404
  Transmission Date: 20120825
  Serious: Yes (Other)
  Sender: FDA-Public Use
  Company Number: BR-JNJFOC-20120402589

PATIENT
  Age: 34 Year
  Sex: Male
  Weight: 101 kg

DRUGS (2)
  1. REMICADE [Suspect]
     Indication: GASTROINTESTINAL OBSTRUCTION
     Route: 042
     Dates: start: 20110701
  2. REMICADE [Suspect]
     Dosage: 0, 2, 6 AND 8 WEEKS.
     Route: 042
     Dates: start: 20110501

REACTIONS (1)
  - ANAL FISTULA [None]
